FAERS Safety Report 4717149-6 (Version None)
Quarter: 2005Q3

REPORT INFORMATION
  Report Type: 
  Country: None (occurrence: None)
  Receive Date: 20050719
  Receipt Date: 20050706
  Transmission Date: 20060218
  Serious: Yes (Hospitalization)
  Sender: FDA-Public Use
  Company Number: FR-GLAXOSMITHKLINE-B0387028A

PATIENT
  Age: 50 Year
  Sex: Male

DRUGS (3)
  1. LAMICTAL [Suspect]
     Indication: EPILEPSY
     Route: 048
     Dates: start: 20030701, end: 20050504
  2. PLAVIX [Suspect]
     Indication: MYOCARDIAL INFARCTION
     Route: 048
     Dates: start: 20050420, end: 20050504
  3. ENALAPRIL MALEATE [Concomitant]
     Dates: start: 20000101

REACTIONS (12)
  - APHASIA [None]
  - BLOOD CREATINE INCREASED [None]
  - BLOOD LACTATE DEHYDROGENASE INCREASED [None]
  - CONVULSION [None]
  - ENZYME ABNORMALITY [None]
  - HAEMOGLOBIN DECREASED [None]
  - HAPTOGLOBIN DECREASED [None]
  - LOSS OF CONSCIOUSNESS [None]
  - MALAISE [None]
  - PARAESTHESIA ORAL [None]
  - THROMBOCYTOPENIA [None]
  - THROMBOTIC THROMBOCYTOPENIC PURPURA [None]
